FAERS Safety Report 19004582 (Version 3)
Quarter: 2024Q3

REPORT INFORMATION
  Report Type: Spontaneous
  Country: RO (occurrence: RO)
  Receive Date: 20210312
  Receipt Date: 20240916
  Transmission Date: 20241017
  Serious: Yes (Death, Hospitalization, Other)
  Sender: ROCHE
  Company Number: RO-ROCHE-2782771

PATIENT
  Age: 62 Year

DRUGS (1)
  1. ATEZOLIZUMAB [Suspect]
     Active Substance: ATEZOLIZUMAB
     Indication: Transitional cell carcinoma
     Route: 065
     Dates: start: 202006

REACTIONS (13)
  - Anaemia [Unknown]
  - Obstructive nephropathy [Unknown]
  - Hydronephrosis [Unknown]
  - Metastases to liver [Unknown]
  - Lacunar stroke [Unknown]
  - Lymphadenopathy mediastinal [Unknown]
  - Retroperitoneal lymphadenopathy [Unknown]
  - Asthenia [Unknown]
  - Defiant behaviour [Unknown]
  - Death [Fatal]
  - Confusional state [Unknown]
  - Weight decreased [Unknown]
  - Lymphadenopathy [Unknown]

NARRATIVE: CASE EVENT DATE: 20200801
